FAERS Safety Report 6257967-9 (Version None)
Quarter: 2009Q3

REPORT INFORMATION
  Report Type: 
  Country: None (occurrence: None)
  Receive Date: 20090702
  Receipt Date: 20090618
  Transmission Date: 20100115
  Serious: Yes (Hospitalization)
  Sender: FDA-Public Use
  Company Number: 2008001143

PATIENT
  Age: 73 Year
  Sex: Male

DRUGS (11)
  1. ERLOTINIB          (ERLOTINIB HCL) [Suspect]
     Indication: LUNG ADENOCARCINOMA
     Dosage: (150 MG, QD), ORAL
     Route: 048
     Dates: start: 20080131
  2. METHYCOBAL (MECOBALAMIN) [Concomitant]
  3. PREDNISOLONE [Concomitant]
  4. ALTAT (ROXATIDINE ACETATE HYDROCHLORIDE) [Concomitant]
  5. MOBIC [Concomitant]
  6. SENNOSIDES [Concomitant]
  7. ALESION (EPINASTINE HYDROCHLORIDE) [Concomitant]
  8. MOHRUS (KETOPROFEN) [Concomitant]
  9. MECOBALAMINE [Concomitant]
  10. ROXIT [Concomitant]
  11. MAGMITT [Concomitant]

REACTIONS (2)
  - PNEUMONIA [None]
  - RASH [None]
